FAERS Safety Report 7953068-X (Version None)
Quarter: 2011Q4

REPORT INFORMATION
  Report Type: 
  Country: None (occurrence: None)
  Receive Date: 20111201
  Receipt Date: 20111121
  Transmission Date: 20120403
  Serious: Yes (Hospitalization)
  Sender: FDA-Public Use
  Company Number: BE-ABBOTT-11P-013-0727406-01

PATIENT
  Sex: Male
  Weight: 58 kg

DRUGS (13)
  1. MULTI-VITAMINS [Concomitant]
     Indication: VITAMIN SUPPLEMENTATION
     Dosage: 1 COMP DAILY
  2. COMMERCIAL HUMIRA [Concomitant]
     Indication: CROHN'S DISEASE
     Dates: start: 20060629
  3. OMEPRAZOLE [Concomitant]
     Indication: DYSPEPSIA
     Dates: start: 20010301
  4. QUESTRAN [Concomitant]
     Indication: DIARRHOEA
     Dates: start: 19990601
  5. FERCAYL [Concomitant]
     Indication: MINERAL SUPPLEMENTATION
     Dates: start: 20060401
  6. NEUROBION [Concomitant]
     Indication: VITAMIN SUPPLEMENTATION
  7. HUMIRA [Suspect]
     Indication: CROHN'S DISEASE
     Dosage: BASELINE
     Route: 058
     Dates: start: 20080327, end: 20080327
  8. HUMIRA [Suspect]
     Dates: start: 20100126
  9. OSTEOPLUS [Concomitant]
     Indication: JOINT STIFFNESS
     Dates: start: 20080101
  10. SELENIUM-ACE [Concomitant]
     Indication: MINERAL SUPPLEMENTATION
     Dosage: 1 COMP DAILY
     Dates: start: 20010101
  11. HUMIRA [Suspect]
     Dosage: WEEK 2
  12. HUMIRA [Suspect]
     Dates: end: 20100106
  13. ASPIRIN [Concomitant]
     Indication: PROPHYLAXIS
     Dates: start: 20010101

REACTIONS (1)
  - SMALL INTESTINAL OBSTRUCTION [None]
